FAERS Safety Report 10022915 (Version 1)
Quarter: 2014Q1

REPORT INFORMATION
  Report Type: Spontaneous
  Country: US (occurrence: US)
  Receive Date: 20140319
  Receipt Date: 20140319
  Transmission Date: 20141002
  Serious: No
  Sender: FDA-Public Use
  Company Number: US-SANOFI-AVENTIS-2013SA041092

PATIENT
  Age: 31 Year
  Sex: Male

DRUGS (1)
  1. NASACORT AQ [Suspect]
     Indication: CHRONIC SINUSITIS
     Dosage: THERAPY START: 10-13 YEARS
     Route: 065

REACTIONS (4)
  - Withdrawal syndrome [Unknown]
  - Headache [Unknown]
  - Pain [Unknown]
  - Epistaxis [Unknown]
